FAERS Safety Report 11814753 (Version 1)
Quarter: 2015Q4

REPORT INFORMATION
  Report Type: Report from Study
  Country: JP (occurrence: JP)
  Receive Date: 20151209
  Receipt Date: 20151209
  Transmission Date: 20160305
  Serious: Yes (Other)
  Sender: FDA-Public Use
  Company Number: JP-CELGENE-JPN-2015120121

PATIENT
  Age: 70 Year
  Sex: Male

DRUGS (14)
  1. VIDAZA [Suspect]
     Active Substance: AZACITIDINE
     Route: 050
     Dates: start: 20130408, end: 20130412
  2. VIDAZA [Suspect]
     Active Substance: AZACITIDINE
     Route: 050
     Dates: start: 20130805, end: 20130812
  3. VIDAZA [Suspect]
     Active Substance: AZACITIDINE
     Route: 050
     Dates: start: 20140120, end: 20140124
  4. VIDAZA [Suspect]
     Active Substance: AZACITIDINE
     Route: 050
     Dates: start: 20130107, end: 20130111
  5. VIDAZA [Suspect]
     Active Substance: AZACITIDINE
     Route: 050
     Dates: start: 20130204, end: 20130208
  6. VIDAZA [Suspect]
     Active Substance: AZACITIDINE
     Route: 050
     Dates: start: 20130527, end: 20130529
  7. VIDAZA [Suspect]
     Active Substance: AZACITIDINE
     Route: 050
     Dates: start: 20130304, end: 20130308
  8. VIDAZA [Suspect]
     Active Substance: AZACITIDINE
     Route: 050
     Dates: start: 20131209, end: 20131213
  9. VIDAZA [Suspect]
     Active Substance: AZACITIDINE
     Route: 050
     Dates: start: 20140224, end: 20140228
  10. VIDAZA [Suspect]
     Active Substance: AZACITIDINE
     Indication: PRODUCT USED FOR UNKNOWN INDICATION
     Route: 050
     Dates: start: 20121029, end: 20121102
  11. VIDAZA [Suspect]
     Active Substance: AZACITIDINE
     Route: 050
     Dates: start: 20121126, end: 20121130
  12. VIDAZA [Suspect]
     Active Substance: AZACITIDINE
     Route: 050
     Dates: start: 20130924, end: 20130930
  13. VIDAZA [Suspect]
     Active Substance: AZACITIDINE
     Route: 050
     Dates: start: 20131028, end: 20131101
  14. VIDAZA [Suspect]
     Active Substance: AZACITIDINE
     Route: 050
     Dates: start: 20140331, end: 20140404

REACTIONS (9)
  - Blast cell count increased [Not Recovered/Not Resolved]
  - Constipation [Recovering/Resolving]
  - Muscle haemorrhage [Recovered/Resolved]
  - Disseminated intravascular coagulation [Recovered/Resolved]
  - Hypokalaemia [Not Recovered/Not Resolved]
  - Platelet count decreased [Recovered/Resolved]
  - Anaemia [Not Recovered/Not Resolved]
  - Upper respiratory tract inflammation [Recovering/Resolving]
  - Diarrhoea [Not Recovered/Not Resolved]

NARRATIVE: CASE EVENT DATE: 20130322
